FAERS Safety Report 18607256 (Version 1)
Quarter: 2020Q4

REPORT INFORMATION
  Report Type: Other
  Country: IT (occurrence: IT)
  Receive Date: 20201211
  Receipt Date: 20201211
  Transmission Date: 20210114
  Serious: Yes (Hospitalization, Other)
  Sender: FDA-Public Use
  Company Number: IT-VALIDUS PHARMACEUTICALS LLC-IT-2020VAL001028

PATIENT

DRUGS (3)
  1. LEVOPRAID                          /01142501/ [Suspect]
     Active Substance: LEVOSULPIRIDE
     Indication: DRUG ABUSE
     Dosage: 2 DF, TOTAL
     Route: 048
     Dates: start: 20200707, end: 20200707
  2. CALCIUM FOLINATE [Suspect]
     Active Substance: LEUCOVORIN CALCIUM
     Indication: DRUG ABUSE
     Dosage: 45 MG, TOTAL
     Route: 048
     Dates: start: 20200707, end: 20200707
  3. LASIX [Suspect]
     Active Substance: FUROSEMIDE
     Indication: DRUG ABUSE
     Dosage: 2 DF, TOTAL
     Route: 048
     Dates: start: 20200707, end: 20200707

REACTIONS (2)
  - Disorganised speech [Not Recovered/Not Resolved]
  - Drug abuse [Unknown]

NARRATIVE: CASE EVENT DATE: 20200707
